FAERS Safety Report 4723714-2 (Version None)
Quarter: 2005Q3

REPORT INFORMATION
  Report Type: 
  Country: None (occurrence: None)
  Receive Date: 20050725
  Receipt Date: 20050711
  Transmission Date: 20060218
  Serious: Yes (Death)
  Sender: FDA-Public Use
  Company Number: JP-JNJFOC-20041203580

PATIENT
  Age: 32 Year
  Sex: Male
  Weight: 58.6 kg

DRUGS (2)
  1. CLADRIBINE [Suspect]
     Indication: MYCOSIS FUNGOIDES
     Route: 050
  2. CLADRIBINE [Suspect]
     Indication: B-CELL LYMPHOMA
     Dosage: 0.09 MG/KG 7 CONSECUTIVE DAYS, EVERY 4 WEEKS
     Route: 050

REACTIONS (5)
  - FOLLICLE CENTRE LYMPHOMA, FOLLICULAR GRADE I, II, III REFRACTORY [None]
  - GASTROINTESTINAL HAEMORRHAGE [None]
  - HERPES SIMPLEX [None]
  - MALIGNANT NEOPLASM PROGRESSION [None]
  - PANCYTOPENIA [None]
